FAERS Safety Report 21188304 (Version 2)
Quarter: 2022Q3

REPORT INFORMATION
  Report Type: Spontaneous
  Country: US (occurrence: US)
  Receive Date: 20220809
  Receipt Date: 20220820
  Transmission Date: 20221027
  Serious: No
  Sender: FDA-Public Use
  Company Number: US-TEVA-2022-US-2060999

PATIENT
  Age: 70 Year
  Sex: Female

DRUGS (2)
  1. LORAZEPAM [Suspect]
     Active Substance: LORAZEPAM
     Indication: Anxiety
     Route: 065
     Dates: start: 20220721
  2. LORAZEPAM [Suspect]
     Active Substance: LORAZEPAM
     Indication: Poor quality sleep

REACTIONS (14)
  - Feeling hot [Unknown]
  - Burning sensation [Unknown]
  - Pain [Unknown]
  - Headache [Unknown]
  - Illness [Unknown]
  - Drug intolerance [Unknown]
  - Asthenia [Unknown]
  - Drug ineffective for unapproved indication [Unknown]
  - Chest discomfort [Unknown]
  - Musculoskeletal discomfort [Unknown]
  - Head discomfort [Unknown]
  - Nervousness [Not Recovered/Not Resolved]
  - Anxiety [Not Recovered/Not Resolved]
  - Somnolence [Unknown]

NARRATIVE: CASE EVENT DATE: 20220721
